FAERS Safety Report 5286771-3 (Version None)
Quarter: 2007Q1

REPORT INFORMATION
  Report Type: 
  Country: None (occurrence: None)
  Receive Date: 20070329
  Receipt Date: 20070321
  Transmission Date: 20070707
  Serious: Yes (Life-Threatening)
  Sender: FDA-Public Use
  Company Number: 100#03#2007-00930

PATIENT
  Age: 39 Year
  Sex: Female

DRUGS (4)
  1. CITALOPRAM HYDROBROMIDE [Suspect]
     Indication: DRUG USE FOR UNKNOWN INDICATION
  2. IMIGRAN (SUMATRIPTAN SUCCINATE) (SUMATRIPTAN) [Suspect]
     Indication: MIGRAINE
     Dosage: 50 MG (1/ 1DAYS); ONCE
     Dates: start: 20070302, end: 20070302
  3. IMODIUM (LOPERAMIDE HYDROCHLORIDE) (LOPERAMIDE, SIMETHICONE) [Concomitant]
  4. MICROGYNON (EUGYNON) (ETHINYLESTRADIOL, LEVONORGESTREL, ) [Concomitant]

REACTIONS (4)
  - ANAPHYLACTIC SHOCK [None]
  - CHEST PAIN [None]
  - DIARRHOEA [None]
  - DRUG INTERACTION [None]
